FAERS Safety Report 7359329-X (Version None)
Quarter: 2011Q1

REPORT INFORMATION
  Report Type: 
  Country: None (occurrence: None)
  Receive Date: 20110317
  Receipt Date: 20091030
  Transmission Date: 20110831
  Serious: Yes (Other)
  Sender: FDA-Public Use
  Company Number: US-PFIZER INC-2009292154

PATIENT
  Sex: Male
  Weight: 74.83 kg

DRUGS (4)
  1. NORVASC [Suspect]
     Indication: HYPERTENSION
     Dates: start: 20090601, end: 20090101
  2. LISINOPRIL [Suspect]
     Indication: HYPERTENSION
     Dates: start: 20090101, end: 20090101
  3. METOPROLOL [Suspect]
     Indication: HYPERTENSION
     Dates: start: 20090101
  4. HYDROCHLOROTHIAZIDE [Suspect]
     Indication: HYPERTENSION
     Dates: start: 20090101, end: 20090101

REACTIONS (5)
  - DIZZINESS [None]
  - NAUSEA [None]
  - BLOOD PRESSURE INADEQUATELY CONTROLLED [None]
  - TEMPERATURE INTOLERANCE [None]
  - HEADACHE [None]
